FAERS Safety Report 24399492 (Version 2)
Quarter: 2024Q4

REPORT INFORMATION
  Report Type: Report from Study
  Country: US (occurrence: US)
  Receive Date: 20241005
  Receipt Date: 20241011
  Transmission Date: 20250115
  Serious: Yes (Hospitalization, Other)
  Sender: ABBVIE
  Company Number: US-ABBVIE-5949232

PATIENT
  Age: 48 Year
  Sex: Female
  Weight: 72.574 kg

DRUGS (1)
  1. SKYRIZI [Suspect]
     Active Substance: RISANKIZUMAB-RZAA
     Indication: Crohn^s disease
     Dosage: FREQUENCY TEXT- UNKNOWN
     Route: 042
     Dates: start: 20240909

REACTIONS (3)
  - Intestinal fistula infection [Recovering/Resolving]
  - Hernia [Not Recovered/Not Resolved]
  - Hernia pain [Not Recovered/Not Resolved]

NARRATIVE: CASE EVENT DATE: 20240917
